FAERS Safety Report 17725497 (Version 2)
Quarter: 2021Q2

REPORT INFORMATION
  Report Type: Spontaneous
  Country: US (occurrence: US)
  Receive Date: 20200429
  Receipt Date: 20210518
  Transmission Date: 20210716
  Serious: Yes (Other)
  Sender: FDA-Public Use
  Company Number: US-ASTRAZENECA-2020SE53806

PATIENT
  Age: 23266 Day
  Sex: Female
  Weight: 101.4 kg

DRUGS (18)
  1. SUCRALFATE. [Concomitant]
     Active Substance: SUCRALFATE
  2. PRILOSEC [Suspect]
     Active Substance: OMEPRAZOLE MAGNESIUM
     Route: 048
     Dates: start: 199101, end: 201707
  3. PREVIDENT [Concomitant]
     Active Substance: SODIUM FLUORIDE
  4. ROZEREM [Concomitant]
     Active Substance: RAMELTEON
  5. IBUPROFEN. [Concomitant]
     Active Substance: IBUPROFEN
  6. THERAGEN [Concomitant]
     Active Substance: CAPSAICIN
  7. NEXIUM [Suspect]
     Active Substance: ESOMEPRAZOLE MAGNESIUM
     Route: 048
     Dates: start: 199101, end: 201707
  8. LAMICTAL [Concomitant]
     Active Substance: LAMOTRIGINE
  9. AMLODIPINE [Concomitant]
     Active Substance: AMLODIPINE BESYLATE
  10. LATANOPROST. [Concomitant]
     Active Substance: LATANOPROST
  11. LISINOPRIL. [Concomitant]
     Active Substance: LISINOPRIL
  12. LIPITOR [Concomitant]
     Active Substance: ATORVASTATIN CALCIUM
  13. CHLORHEXIDINE GLUCONATE. [Concomitant]
     Active Substance: CHLORHEXIDINE GLUCONATE
  14. OXYBUTYNIN CHLORIDE. [Concomitant]
     Active Substance: OXYBUTYNIN CHLORIDE
  15. ECOTRIN [Concomitant]
     Active Substance: ASPIRIN
  16. TEMAZEPAM. [Concomitant]
     Active Substance: TEMAZEPAM
  17. SILENOR [Concomitant]
     Active Substance: DOXEPIN HYDROCHLORIDE
  18. NEXIUM 24HR [Suspect]
     Active Substance: ESOMEPRAZOLE MAGNESIUM
     Route: 048
     Dates: start: 199101, end: 201707

REACTIONS (3)
  - Acute kidney injury [Unknown]
  - Renal failure [Unknown]
  - Chronic kidney disease [Unknown]

NARRATIVE: CASE EVENT DATE: 20141106
